FAERS Safety Report 6125516-1 (Version None)
Quarter: 2009Q1

REPORT INFORMATION
  Report Type: 
  Country: None (occurrence: None)
  Receive Date: 20090320
  Receipt Date: 20090312
  Transmission Date: 20090719
  Serious: Yes (Other)
  Sender: FDA-Public Use
  Company Number: US-ASTRAZENECA-2009UW02959

PATIENT
  Age: 60 Year
  Sex: Male
  Weight: 97.5 kg

DRUGS (3)
  1. CRESTOR [Suspect]
     Indication: BLOOD CHOLESTEROL INCREASED
     Route: 048
     Dates: start: 20090106, end: 20090128
  2. NITROGLYCERIN TIME RELEASE [Concomitant]
     Indication: ANGINA PECTORIS
  3. METOPROLOL TARTRATE [Concomitant]
     Indication: HYPERTENSION

REACTIONS (4)
  - EYE SWELLING [None]
  - LIP SWELLING [None]
  - PRURITUS [None]
  - URTICARIA [None]
